FAERS Safety Report 6492626-9 (Version None)
Quarter: 2009Q4

REPORT INFORMATION
  Report Type: 
  Country: None (occurrence: None)
  Receive Date: 20091214
  Receipt Date: 20091210
  Transmission Date: 20100525
  Serious: Yes (Death, Hospitalization)
  Sender: FDA-Public Use
  Company Number: PHEH2009US14369

PATIENT
  Sex: Male

DRUGS (1)
  1. EXJADE [Suspect]
     Dosage: 1250 MG, DAILY
     Route: 048

REACTIONS (4)
  - ABDOMINAL PAIN UPPER [None]
  - CONCOMITANT DISEASE PROGRESSION [None]
  - LUNG DISORDER [None]
  - MALAISE [None]
